FAERS Safety Report 7443073-4 (Version None)
Quarter: 2011Q2

REPORT INFORMATION
  Report Type: 
  Country: None (occurrence: None)
  Receive Date: 20110428
  Receipt Date: 20110415
  Transmission Date: 20111010
  Serious: Yes (Hospitalization)
  Sender: FDA-Public Use
  Company Number: SE-BAYER-2011-023296

PATIENT
  Age: 57 Year
  Sex: Male
  Weight: 82 kg

DRUGS (9)
  1. VINCRISTINE [Suspect]
     Indication: T-CELL LYMPHOMA
     Dosage: 2 MG, ONCE
     Route: 042
     Dates: start: 20110210, end: 20110210
  2. FLUCONAZOLE [Concomitant]
     Dosage: UNK
     Dates: start: 20110128
  3. SULFAMETHOXAZOLE W/TRIMETHOPRIM [Concomitant]
     Dosage: UNK
     Dates: start: 20110120
  4. DOXORUBICIN [Suspect]
     Indication: T-CELL LYMPHOMA
     Dosage: 105 MG, ONCE
     Route: 042
     Dates: start: 20110210, end: 20110210
  5. FILGRASTIM [Suspect]
     Indication: T-CELL LYMPHOMA
     Dosage: 263 ?G, QD
     Route: 058
     Dates: start: 20110213, end: 20110222
  6. VALACICLOVIR [Concomitant]
     Dosage: UNK
     Dates: start: 20110120
  7. CYCLOPHOSPHAMIDE [Suspect]
     Indication: T-CELL LYMPHOMA
     Dosage: 1580 MG, ONCE
     Route: 042
     Dates: start: 20110210, end: 20110210
  8. PREDNISONE [Suspect]
     Dosage: 100 MG, QD X 5
     Route: 048
     Dates: start: 20110210, end: 20110214
  9. ALEMTUZUMAB 10/1ML [Suspect]
     Indication: T-CELL LYMPHOMA
     Dosage: 30 MG, ONCE
     Route: 058
     Dates: start: 20110210, end: 20110210

REACTIONS (2)
  - PYREXIA [None]
  - NEUTROPENIA [None]
